FAERS Safety Report 19042872 (Version 2)
Quarter: 2021Q3

REPORT INFORMATION
  Report Type: Spontaneous
  Country: US (occurrence: US)
  Receive Date: 20210323
  Receipt Date: 20210716
  Transmission Date: 20211014
  Serious: Yes (Other)
  Sender: FDA-Public Use
  Company Number: US-STRIDES ARCOLAB LIMITED-2021SP003324

PATIENT
  Age: 53 Year
  Sex: Female

DRUGS (2)
  1. RANITIDINE. [Suspect]
     Active Substance: RANITIDINE
     Indication: GASTROOESOPHAGEAL REFLUX DISEASE
     Dosage: UNK (ZANTAC)
     Route: 048
     Dates: start: 200201, end: 202001
  2. RANITIDINE. [Suspect]
     Active Substance: RANITIDINE
     Dosage: UNK (RANITIDINE)
     Route: 048
     Dates: start: 200201, end: 202001

REACTIONS (1)
  - Colorectal cancer [Recovered/Resolved]

NARRATIVE: CASE EVENT DATE: 20190311
